FAERS Safety Report 24887633 (Version 2)
Quarter: 2025Q1

REPORT INFORMATION
  Report Type: Spontaneous
  Country: US (occurrence: US)
  Receive Date: 20250127
  Receipt Date: 20250224
  Transmission Date: 20250409
  Serious: No
  Sender: SANOFI AVENTIS
  Company Number: US-SA-2025SA023875

PATIENT
  Age: 62 Year
  Sex: Male

DRUGS (2)
  1. REZUROCK [Suspect]
     Active Substance: BELUMOSUDIL
     Indication: Interstitial lung disease
     Dosage: 200 MG, BID
     Route: 048
     Dates: start: 20250102
  2. REZUROCK [Suspect]
     Active Substance: BELUMOSUDIL
     Indication: Lung transplant rejection

REACTIONS (4)
  - Tremor [Unknown]
  - Muscle spasms [Unknown]
  - Product use in unapproved indication [Unknown]
  - Inappropriate schedule of product administration [Unknown]

NARRATIVE: CASE EVENT DATE: 20250101
